FAERS Safety Report 11880072 (Version 1)
Quarter: 2015Q4

REPORT INFORMATION
  Report Type: Other
  Country: FR (occurrence: FR)
  Receive Date: 20151230
  Receipt Date: 20151230
  Transmission Date: 20160305
  Serious: Yes (Hospitalization)
  Sender: FDA-Public Use
  Company Number: FR-MYLANLABS-2015M1046874

PATIENT

DRUGS (15)
  1. DROLEPTAN [Suspect]
     Active Substance: DROPERIDOL
     Indication: SURGERY
     Dosage: UNK
     Dates: start: 20151022
  2. AMOXICILLINE SANDOZ [Suspect]
     Active Substance: AMOXICILLIN
     Indication: PRODUCT USED FOR UNKNOWN INDICATION
     Dosage: UNK
     Route: 042
     Dates: start: 20151022, end: 20151023
  3. PROPOFOL PANPHARMA [Suspect]
     Active Substance: PROPOFOL
     Indication: SURGERY
     Dosage: UNK
     Dates: start: 20151022
  4. ATROPINE SULFATE AGUETTANT [Suspect]
     Active Substance: ATROPINE SULFATE
     Indication: SURGERY
     Dosage: UNK
     Dates: start: 20151022
  5. XYLOCAINE [Suspect]
     Active Substance: LIDOCAINE HYDROCHLORIDE
     Indication: SURGERY
     Dosage: UNK
     Dates: start: 20151022
  6. SEVOFLURANE BAXTER [Suspect]
     Active Substance: SEVOFLURANE
     Indication: SURGERY
     Dosage: UNK
     Dates: start: 20151022
  7. AMOXICILLINA E ACIDO CLAVULANICO SANDOZ [Suspect]
     Active Substance: AMOXICILLIN\CLAVULANATE POTASSIUM
     Indication: ANTIBIOTIC PROPHYLAXIS
     Dosage: UNK
     Route: 042
     Dates: start: 20151022
  8. CONTRAMAL [Suspect]
     Active Substance: TRAMADOL HYDROCHLORIDE
     Indication: PRODUCT USED FOR UNKNOWN INDICATION
     Dosage: UNK
     Dates: start: 20151022
  9. ACUPAN [Suspect]
     Active Substance: NEFOPAM HYDROCHLORIDE
     Indication: PRODUCT USED FOR UNKNOWN INDICATION
     Dosage: UNK
     Dates: start: 20151022
  10. SUFENTANIL MYLAN [Suspect]
     Active Substance: SUFENTANIL
     Indication: SURGERY
     Dosage: UNK
     Dates: start: 20151022
  11. DEXAMETHASONE MYLAN [Suspect]
     Active Substance: DEXAMETHASONE
     Indication: SURGERY
     Dosage: UNK
     Dates: start: 20151022
  12. KETAMINE PANPHARMA [Suspect]
     Active Substance: KETAMINE
     Indication: SURGERY
     Dosage: UNK
     Dates: start: 20151022
  13. ATRACURIUM HOSPIRA [Suspect]
     Active Substance: ATRACURIUM
     Indication: SURGERY
     Dosage: UNK
     Dates: start: 20151022
  14. NEOSTIGMINE METHYLSULFATE. [Suspect]
     Active Substance: NEOSTIGMINE METHYLSULFATE
     Indication: SURGERY
     Dosage: UNK
     Dates: start: 20151022
  15. EPHEDRINE AGUETTANT [Suspect]
     Active Substance: EPHEDRINE
     Indication: SURGERY
     Dosage: UNK
     Dates: start: 20151022

REACTIONS (3)
  - Renal failure [Recovered/Resolved]
  - Fistula [Unknown]
  - Abscess [Unknown]

NARRATIVE: CASE EVENT DATE: 20151023
